FAERS Safety Report 18781706 (Version 1)
Quarter: 2021Q1

REPORT INFORMATION
  Report Type: Spontaneous
  Country: US (occurrence: US)
  Receive Date: 20210125
  Receipt Date: 20210125
  Transmission Date: 20210419
  Serious: No
  Sender: FDA-Public Use
  Company Number: None

PATIENT
  Age: 63 Year
  Sex: Female
  Weight: 73.9 kg

DRUGS (4)
  1. PACLITAXEL. [Suspect]
     Active Substance: PACLITAXEL
     Indication: HER2 POSITIVE BREAST CANCER
     Dosage: ?          OTHER FREQUENCY:EVERY 7 DAYS;?
     Route: 041
     Dates: start: 20210114
  2. DEXAMETHASONE IN 0.9 % NACL (DECADRON) 20 MG/25 ML IVPB 20 MG [Concomitant]
     Dates: start: 20210114
  3. DIPHENHYDRAMINE (BENADRYL) INJECTION 50 MG [Concomitant]
     Dates: start: 20210114
  4. FAMOTIDINE (PEPCID) PF INJECTION 40 MG [Concomitant]
     Dates: start: 20210114

REACTIONS (5)
  - Dyspnoea [None]
  - Infusion related reaction [None]
  - Pruritus [None]
  - Anxiety [None]
  - Throat tightness [None]

NARRATIVE: CASE EVENT DATE: 20210114
